FAERS Safety Report 5751687-2 (Version None)
Quarter: 2008Q2

REPORT INFORMATION
  Report Type: 
  Country: None (occurrence: None)
  Receive Date: 20080528
  Receipt Date: 20080523
  Transmission Date: 20081010
  Serious: Yes (Death, Hospitalization)
  Sender: FDA-Public Use
  Company Number: PHHO2007BR15163

PATIENT
  Age: 68 Year
  Sex: Female
  Weight: 95 kg

DRUGS (1)
  1. EXFORGE [Suspect]
     Indication: HYPERTENSION
     Dosage: 160/5 MG DAILY
     Route: 048

REACTIONS (6)
  - BLOOD URINE PRESENT [None]
  - COMA [None]
  - HEADACHE [None]
  - HYPERTENSION [None]
  - METASTASES TO CENTRAL NERVOUS SYSTEM [None]
  - METASTASIS [None]
